FAERS Safety Report 4659229-X (Version None)
Quarter: 2005Q2

REPORT INFORMATION
  Report Type: 
  Country: None (occurrence: None)
  Receive Date: 20050511
  Receipt Date: 20050414
  Transmission Date: 20051028
  Serious: Yes (Hospitalization)
  Sender: FDA-Public Use
  Company Number: 2005PK00665

PATIENT
  Age: 35 Year
  Sex: Male
  Weight: 150 kg

DRUGS (6)
  1. SEROQUEL [Suspect]
     Indication: SCHIZOPHRENIA
     Route: 048
     Dates: start: 20000101
  2. LASIX [Interacting]
     Indication: OEDEMA PERIPHERAL
     Dates: start: 20041201
  3. HALDOL DECANOAT [Concomitant]
     Indication: SCHIZOPHRENIA
     Route: 030
     Dates: start: 19940101
  4. CITALOPRAM [Concomitant]
     Indication: APATHY
     Route: 048
  5. CITALOPRAM [Concomitant]
     Indication: DEPRESSION
     Route: 048
  6. CITALOPRAM [Concomitant]
     Indication: FEAR
     Route: 048

REACTIONS (6)
  - DRUG INTERACTION [None]
  - HALLUCINATION, AUDITORY [None]
  - OEDEMA PERIPHERAL [None]
  - PSYCHOTIC DISORDER [None]
  - SCHIZOPHRENIA [None]
  - WEIGHT INCREASED [None]
